FAERS Safety Report 7546091-0 (Version None)
Quarter: 2011Q2

REPORT INFORMATION
  Report Type: 
  Country: None (occurrence: None)
  Receive Date: 20110614
  Receipt Date: 20110602
  Transmission Date: 20111010
  Serious: Yes (Other)
  Sender: FDA-Public Use
  Company Number: PHHY2010JP32842

PATIENT
  Sex: Female

DRUGS (6)
  1. SLOW-K [Concomitant]
     Indication: PROPHYLAXIS
     Dosage: 3 DF, UNK
     Route: 048
     Dates: start: 20090722, end: 20100117
  2. LANSOPRAZOLE [Concomitant]
     Indication: PROPHYLAXIS
     Dosage: 30 MG, UNK
     Route: 048
     Dates: start: 20090512, end: 20100117
  3. TASIGNA [Suspect]
     Indication: CHRONIC MYELOID LEUKAEMIA
     Dosage: 400 MG, DAILY
     Route: 048
     Dates: start: 20090727, end: 20090804
  4. VERAPAMIL HCL [Concomitant]
     Dosage: 3 DF, UNK
     Route: 048
     Dates: start: 20090529, end: 20100117
  5. HUSTAZOL [Concomitant]
     Dosage: 3 DF, UNK
     Route: 048
     Dates: start: 20090703, end: 20100117
  6. WARFARIN SODIUM [Concomitant]
     Dosage: 3 DF, UNK
     Route: 048
     Dates: start: 20090518, end: 20100117

REACTIONS (1)
  - ELECTROCARDIOGRAM QT PROLONGED [None]
